FAERS Safety Report 6402028-9 (Version None)
Quarter: 2009Q4

REPORT INFORMATION
  Report Type: 
  Country: None (occurrence: None)
  Receive Date: 20091015
  Receipt Date: 20091013
  Transmission Date: 20100525
  Serious: No
  Sender: FDA-Public Use
  Company Number: US-B.I. PHARMACEUTICALS,INC./RIDGEFIELD-2009-BP-11971BP

PATIENT
  Sex: Female

DRUGS (1)
  1. ZANTAC 150 [Suspect]
     Indication: OESOPHAGEAL DISORDER
     Dosage: 300 MG
     Route: 048
     Dates: start: 20091013

REACTIONS (2)
  - PRURITUS [None]
  - SWELLING FACE [None]
